FAERS Safety Report 24188513 (Version 1)
Quarter: 2024Q3

REPORT INFORMATION
  Report Type: Spontaneous
  Country: US (occurrence: None)
  Receive Date: 20240807
  Receipt Date: 20240807
  Transmission Date: 20241017
  Serious: Yes (Hospitalization)
  Sender: Public
  Company Number: None

PATIENT
  Sex: Female

DRUGS (4)
  1. AMBRISENTAN [Suspect]
     Active Substance: AMBRISENTAN
     Indication: Pulmonary arterial hypertension
     Dosage: FREQUENCY : DAILY;?
     Route: 048
     Dates: start: 202203
  2. UPTRAVI [Concomitant]
  3. ADEMPAS [Concomitant]
  4. WINREVAIR SDV [Concomitant]

REACTIONS (4)
  - Cardiac disorder [None]
  - Dyspnoea exertional [None]
  - Fatigue [None]
  - Peripheral swelling [None]
